FAERS Safety Report 6478692-5 (Version None)
Quarter: 2009Q4

REPORT INFORMATION
  Report Type: 
  Country: None (occurrence: None)
  Receive Date: 20091207
  Receipt Date: 20091207
  Transmission Date: 20100525
  Serious: Yes (Hospitalization, Other)
  Sender: FDA-Public Use
  Company Number: US-PFIZER INC-2009288574

PATIENT
  Age: 74 Year
  Sex: Female
  Weight: 79.365 kg

DRUGS (1)
  1. LYRICA [Suspect]
     Indication: FIBROMYALGIA
     Dosage: 100 MG, 2X/DAY
     Route: 048
     Dates: start: 20090701

REACTIONS (8)
  - ASTHENIA [None]
  - EYE MOVEMENT DISORDER [None]
  - GAIT DISTURBANCE [None]
  - HERPES ZOSTER [None]
  - MUSCULAR WEAKNESS [None]
  - PNEUMONIA [None]
  - SEPSIS [None]
  - TREMOR [None]
